FAERS Safety Report 9513748 (Version 1)
Quarter: 2013Q1

REPORT INFORMATION
  Report Type: Spontaneous
  Country: US (occurrence: None)
  Receive Date: 20130305
  Receipt Date: 20130305
  Transmission Date: 20140127
  Serious: No
  Sender: FDA-Public Use
  Company Number: 163-21880-12092053

PATIENT
  Age: 83 Year
  Sex: Male

DRUGS (2)
  1. REVLIMID ( (LENALIDOMIDE) (15 MILLIGRAM, CAPSULES) [Suspect]
     Dosage: 15MG, 14 IN 21 D, PO
     Route: 048
     Dates: start: 20090825
  2. COUMADIN (WARFARIN SODIUM) [Concomitant]

REACTIONS (1)
  - Prothrombin time prolonged [None]
